FAERS Safety Report 6919504-2 (Version None)
Quarter: 2010Q3

REPORT INFORMATION
  Report Type: 
  Country: None (occurrence: None)
  Receive Date: 20100810
  Receipt Date: 20100810
  Transmission Date: 20110219
  Serious: No
  Sender: FDA-Public Use
  Company Number: None

PATIENT
  Age: 43 Year
  Sex: Female

DRUGS (3)
  1. ROCEPHIN [Suspect]
     Dosage: 1 GM/DAY
     Dates: start: 20081009, end: 20081011
  2. DIFLUCAN [Suspect]
     Dosage: 400 MG IV Q. 24H
     Dates: start: 20081014, end: 20081026
  3. UNASYN [Suspect]
     Dosage: 3 G IV Q, 6 HOURS
     Dates: start: 20081012, end: 20081022

REACTIONS (5)
  - BLOOD CREATINE PHOSPHOKINASE INCREASED [None]
  - HEPATITIS ACUTE [None]
  - LIVER INJURY [None]
  - LUDWIG ANGINA [None]
  - OBSTRUCTIVE AIRWAYS DISORDER [None]
